FAERS Safety Report 23325519 (Version 1)
Quarter: 2023Q4

REPORT INFORMATION
  Report Type: Spontaneous
  Country: US (occurrence: US)
  Receive Date: 20231221
  Receipt Date: 20231221
  Transmission Date: 20240110
  Serious: No
  Sender: FDA-Public Use
  Company Number: US-ABBVIE-5543352

PATIENT
  Sex: Female

DRUGS (1)
  1. LATISSE [Suspect]
     Active Substance: BIMATOPROST
     Indication: Product used for unknown indication
     Dosage: BOTTLE LOT- 391944, BRUSHES LOT- 156722511
     Route: 065

REACTIONS (2)
  - Device issue [Unknown]
  - Wrong technique in device usage process [Unknown]
